FAERS Safety Report 5050807-5 (Version None)
Quarter: 2006Q3

REPORT INFORMATION
  Report Type: 
  Country: None (occurrence: None)
  Receive Date: 20060710
  Receipt Date: 20060623
  Transmission Date: 20061208
  Serious: Yes (Hospitalization)
  Sender: FDA-Public Use
  Company Number: GXKR2006TN03580

PATIENT
  Age: 71 Year
  Sex: Female

DRUGS (2)
  1. INDOMETHACIN [Suspect]
     Indication: RHEUMATOID ARTHRITIS
  2. CAPTOPRIL [Concomitant]

REACTIONS (2)
  - HYPOCALCAEMIA [None]
  - PANCREATITIS NECROTISING [None]
